FAERS Safety Report 5003263-7 (Version None)
Quarter: 2006Q1

REPORT INFORMATION
  Report Type: 
  Country: None (occurrence: None)
  Receive Date: 20060317
  Receipt Date: 20060131
  Transmission Date: 20060701
  Serious: Yes (Hospitalization, Disabling)
  Sender: FDA-Public Use
  Company Number: US-JNJFOC-20051105325

PATIENT
  Age: 15 Year
  Sex: Female
  Weight: 52.1637 kg

DRUGS (3)
  1. ORTHO EVRA [Suspect]
     Indication: ACNE
     Dosage: 1 DOSE(S), 3 IN 4 WEEK, TRANSDERMAL
     Route: 062
     Dates: start: 20040201, end: 20050221
  2. ORTHO EVRA [Suspect]
     Indication: MENSTRUATION IRREGULAR
     Dosage: 1 DOSE(S), 3 IN 4 WEEK, TRANSDERMAL
     Route: 062
     Dates: start: 20040201, end: 20050221
  3. ORTHO EVRA [Suspect]
     Indication: POLYCYSTIC OVARIES
     Dosage: 1 DOSE(S), 3 IN 4 WEEK, TRANSDERMAL
     Route: 062
     Dates: start: 20040201, end: 20050221

REACTIONS (1)
  - CEREBRAL INFARCTION [None]
